FAERS Safety Report 14852536 (Version 1)
Quarter: 2018Q2

REPORT INFORMATION
  Report Type: Spontaneous
  Country: FR (occurrence: FR)
  Receive Date: 20180507
  Receipt Date: 20180507
  Transmission Date: 20180711
  Serious: Yes (Hospitalization)
  Sender: FDA-Public Use
  Company Number: FR-ABBVIE-18P-056-2343034-00

PATIENT
  Age: 61 Year
  Sex: Male

DRUGS (6)
  1. SODIUM VALPROATE [Suspect]
     Active Substance: VALPROATE SODIUM
     Indication: EPILEPSY
     Dosage: DAILY
     Route: 048
     Dates: end: 20180321
  2. HALDOL [Interacting]
     Active Substance: HALOPERIDOL
     Indication: SCHIZOPHRENIA
     Dosage: DAILY
     Route: 048
     Dates: end: 20180321
  3. LEPTICUR [Interacting]
     Active Substance: TROPATEPINE HYDROCHLORIDE
     Indication: SCHIZOPHRENIA
     Dosage: DAILY
     Route: 048
     Dates: end: 20180321
  4. VIMPAT [Suspect]
     Active Substance: LACOSAMIDE
     Indication: EPILEPSY
     Dosage: DAILY
     Route: 048
     Dates: end: 20180321
  5. LEVETIRACETAM. [Suspect]
     Active Substance: LEVETIRACETAM
     Indication: EPILEPSY
     Dosage: DAILY
     Route: 048
     Dates: end: 20180321
  6. CLOZAPINE. [Suspect]
     Active Substance: CLOZAPINE
     Indication: SCHIZOPHRENIA
     Dosage: DAILY
     Route: 048
     Dates: start: 20180227, end: 20180321

REACTIONS (4)
  - Constipation [Recovered/Resolved with Sequelae]
  - Vomiting [Recovered/Resolved with Sequelae]
  - Drug interaction [Unknown]
  - Intestinal obstruction [Recovered/Resolved with Sequelae]

NARRATIVE: CASE EVENT DATE: 20180321
